FAERS Safety Report 8181404-0 (Version None)
Quarter: 2012Q1

REPORT INFORMATION
  Report Type: 
  Country: None (occurrence: None)
  Receive Date: 20120302
  Receipt Date: 20120229
  Transmission Date: 20120608
  Serious: No
  Sender: FDA-Public Use
  Company Number: US-TEVA-321345USA

PATIENT
  Sex: Female

DRUGS (5)
  1. ACEBUTOLOL [Concomitant]
  2. COPAXONE [Suspect]
     Indication: MULTIPLE SCLEROSIS
     Dosage: 20 MILLIGRAM;
     Route: 058
     Dates: start: 20060101
  3. PREGABALIN [Concomitant]
  4. BACLOFEN [Concomitant]
  5. AMPYRA [Concomitant]

REACTIONS (2)
  - INJECTION SITE ATROPHY [None]
  - INJECTION SITE PAIN [None]
